FAERS Safety Report 14338494 (Version 1)
Quarter: 2017Q4

REPORT INFORMATION
  Report Type: Report from Study
  Country: ES (occurrence: ES)
  Receive Date: 20171229
  Receipt Date: 20171229
  Transmission Date: 20180321
  Serious: Yes (Hospitalization)
  Sender: FDA-Public Use
  Company Number: ES-BAUSCH-BL-2017-035008

PATIENT
  Age: 3 Year
  Sex: Male

DRUGS (9)
  1. METOTREXATO (418A) [Suspect]
     Active Substance: METHOTREXATE
     Indication: ACUTE LYMPHOCYTIC LEUKAEMIA
     Route: 042
     Dates: start: 20170712, end: 20170713
  2. SEPTRIN PEDIATRICO [Concomitant]
     Indication: OPPORTUNISTIC INFECTION PROPHYLAXIS
     Dosage: 8 MG/40 MG/ML, 1 BOTTLE OF 100 ML
     Route: 048
     Dates: start: 20170307
  3. MESNA (1078A) [Concomitant]
     Indication: PROPHYLAXIS
     Route: 042
     Dates: start: 20170713, end: 20170715
  4. DAUNORUBICINA HIDROCLORURO (177CH) [Suspect]
     Active Substance: DAUNORUBICIN HYDROCHLORIDE
     Indication: ACUTE LYMPHOCYTIC LEUKAEMIA
     Route: 042
     Dates: start: 20170716, end: 20170716
  5. ZOVIRAX [Concomitant]
     Active Substance: ACYCLOVIR
     Indication: OPPORTUNISTIC INFECTION PROPHYLAXIS
     Dosage: 400 MG/5 ML, 1 BOTTLE OF 200 ML
     Route: 048
     Dates: start: 20170307
  6. FOLINICO ACIDO (1587A) [Concomitant]
     Indication: PROPHYLAXIS
     Route: 042
     Dates: start: 20170714, end: 20170714
  7. DEXAMETASONA (722A) [Suspect]
     Active Substance: DEXAMETHASONE
     Indication: ACUTE LYMPHOCYTIC LEUKAEMIA
     Route: 042
     Dates: start: 20170712, end: 20170717
  8. VINDESINA SULFATO (810SU) [Suspect]
     Active Substance: VINDESINE SULFATE
     Indication: ACUTE MYELOID LEUKAEMIA
     Route: 042
     Dates: start: 20170712, end: 20170717
  9. IFOSFAMIDA (337A) [Suspect]
     Active Substance: IFOSFAMIDE
     Indication: ACUTE LYMPHOCYTIC LEUKAEMIA
     Route: 042
     Dates: start: 20170713, end: 20170715

REACTIONS (3)
  - Febrile neutropenia [Recovered/Resolved]
  - Stomatitis [Recovered/Resolved]
  - Device related infection [Recovered/Resolved]

NARRATIVE: CASE EVENT DATE: 20170718
